FAERS Safety Report 7623272-9 (Version None)
Quarter: 2011Q3

REPORT INFORMATION
  Report Type: 
  Country: None (occurrence: None)
  Receive Date: 20110720
  Receipt Date: 20110711
  Transmission Date: 20111222
  Serious: Yes (Hospitalization)
  Sender: FDA-Public Use
  Company Number: BR-MEDIMMUNE-MEDI-0013337

PATIENT
  Sex: Female
  Weight: 4.2 kg

DRUGS (2)
  1. PHENOBARBITAL TAB [Concomitant]
     Route: 048
     Dates: start: 20110228
  2. SYNAGIS [Suspect]
     Indication: BRONCHOPULMONARY DYSPLASIA
     Route: 030
     Dates: start: 20110614, end: 20110614

REACTIONS (5)
  - NASOPHARYNGITIS [None]
  - COUGH [None]
  - CHOKING [None]
  - BRONCHIOLITIS [None]
  - INCREASED BRONCHIAL SECRETION [None]
